FAERS Safety Report 7845538-X (Version None)
Quarter: 2011Q4

REPORT INFORMATION
  Report Type: 
  Country: None (occurrence: None)
  Receive Date: 20111025
  Receipt Date: 20111012
  Transmission Date: 20120403
  Serious: Yes (Hospitalization)
  Sender: FDA-Public Use
  Company Number: NL-MYLANLABS-2011S1021266

PATIENT
  Age: 51 Year
  Sex: Male
  Weight: 100 kg

DRUGS (13)
  1. BIVALIRUDIN [Suspect]
     Dates: end: 20110325
  2. HEPARIN [Concomitant]
     Indication: PRODUCT USED FOR UNKNOWN INDICATION
  3. PERINDOPRIL ERBUMINE [Concomitant]
     Indication: PRODUCT USED FOR UNKNOWN INDICATION
     Dates: start: 20110317
  4. METOPROLOL TARTRATE [Suspect]
     Indication: ACUTE CORONARY SYNDROME
     Route: 048
     Dates: start: 20110316, end: 20110325
  5. PANTOPRAZOLE [Concomitant]
     Indication: PRODUCT USED FOR UNKNOWN INDICATION
     Dates: start: 20110316
  6. LIPITOR [Concomitant]
     Indication: PRODUCT USED FOR UNKNOWN INDICATION
     Dates: start: 20110316
  7. OFLOXACIN [Suspect]
     Indication: BLOOD CHOLESTEROL
     Route: 048
     Dates: end: 20110425
  8. ASPIRIN [Concomitant]
     Dates: start: 20110317
  9. CLOPIDOGREL [Concomitant]
     Indication: PRODUCT USED FOR UNKNOWN INDICATION
     Dates: start: 20110316, end: 20110316
  10. CLOPIDOGREL [Concomitant]
     Dates: start: 20110317
  11. ASPIRIN [Concomitant]
     Indication: PRODUCT USED FOR UNKNOWN INDICATION
  12. BIVALIRUDIN [Suspect]
     Route: 040
     Dates: start: 20110316, end: 20110316
  13. BIVALIRUDIN [Suspect]
     Indication: PERCUTANEOUS CORONARY INTERVENTION
     Route: 040
     Dates: start: 20110316, end: 20110316

REACTIONS (2)
  - HYPERTENSION [None]
  - BRADYCARDIA [None]
